FAERS Safety Report 23884125 (Version 1)
Quarter: 2024Q2

REPORT INFORMATION
  Report Type: Spontaneous
  Country: US (occurrence: None)
  Receive Date: 20240521
  Receipt Date: 20240521
  Transmission Date: 20240715
  Serious: Yes (Hospitalization)
  Sender: FDA-Public Use
  Company Number: None

PATIENT
  Age: 74 Year
  Sex: Female
  Weight: 56.3 kg

DRUGS (1)
  1. SMOFLIPID [Suspect]
     Active Substance: FISH OIL\MEDIUM-CHAIN TRIGLYCERIDES\OLIVE OIL\SOYBEAN OIL
     Indication: Gastric cancer
     Dosage: FREQUENCY : DAILY;?
     Route: 042
     Dates: start: 20240407, end: 20240430

REACTIONS (5)
  - Chest pain [None]
  - Infusion related reaction [None]
  - Nausea [None]
  - Hypersensitivity [None]
  - Muscle tightness [None]

NARRATIVE: CASE EVENT DATE: 20240426
